FAERS Safety Report 23308938 (Version 2)
Quarter: 2023Q4

REPORT INFORMATION
  Report Type: Spontaneous
  Country: KR (occurrence: KR)
  Receive Date: 20231218
  Receipt Date: 20231219
  Transmission Date: 20240110
  Serious: Yes (Death)
  Sender: FDA-Public Use
  Company Number: KR-ANTENGENE-20231202192

PATIENT
  Age: 65 Year
  Sex: Male

DRUGS (1)
  1. XPOVIO [Suspect]
     Active Substance: SELINEXOR
     Indication: Plasma cell myeloma
     Dosage: 80 MG, 2X/WEEK
     Route: 048
     Dates: start: 20231207, end: 20231209

REACTIONS (2)
  - Plasma cell myeloma [Fatal]
  - Pyrexia [Unknown]

NARRATIVE: CASE EVENT DATE: 20231211
